FAERS Safety Report 5257955-5 (Version None)
Quarter: 2007Q1

REPORT INFORMATION
  Report Type: 
  Country: None (occurrence: None)
  Receive Date: 20070307
  Receipt Date: 20070126
  Transmission Date: 20070707
  Serious: No
  Sender: FDA-Public Use
  Company Number: US-GLAXOSMITHKLINE-A0626891A

PATIENT
  Age: 56 Year
  Sex: Female
  Weight: 66.8 kg

DRUGS (15)
  1. REQUIP [Suspect]
     Indication: RESTLESS LEGS SYNDROME
     Dosage: 4MG PER DAY
     Route: 048
     Dates: start: 20060509, end: 20060529
  2. CYMBALTA [Concomitant]
     Indication: DEPRESSION
     Dosage: 60MG PER DAY
     Route: 048
     Dates: start: 20060901
  3. AMBIEN [Concomitant]
     Indication: INSOMNIA
     Route: 048
  4. AVAPRO [Concomitant]
     Indication: HYPERTENSION
     Route: 048
     Dates: start: 20060301
  5. COREG [Concomitant]
     Indication: HYPERTENSION
     Route: 048
  6. FLONASE [Concomitant]
     Route: 045
  7. LYRICA [Concomitant]
     Indication: DIABETIC NEUROPATHY
     Dosage: 75MG TWICE PER DAY
     Route: 048
  8. ZOCOR [Concomitant]
     Dosage: 40MG PER DAY
     Route: 048
  9. UNKNOWN MEDICATION [Concomitant]
  10. ASPIRIN [Concomitant]
     Route: 048
  11. UNSPECIFIED MEDICATION [Concomitant]
  12. METFORMIN HCL [Concomitant]
     Indication: DIABETES MELLITUS
     Route: 048
  13. PROTONIX [Concomitant]
     Route: 048
  14. LEVOTHYROXINE SODIUM [Concomitant]
     Indication: HYPOTHYROIDISM
     Route: 048
  15. ZYPREXA [Concomitant]
     Indication: BIPOLAR DISORDER
     Route: 048

REACTIONS (4)
  - DISORIENTATION [None]
  - DYSKINESIA [None]
  - SMOKER [None]
  - TREMOR [None]
